FAERS Safety Report 5327582-X (Version None)
Quarter: 2007Q2

REPORT INFORMATION
  Report Type: 
  Country: None (occurrence: None)
  Receive Date: 20070517
  Receipt Date: 20070112
  Transmission Date: 20071010
  Serious: Yes (Hospitalization)
  Sender: FDA-Public Use
  Company Number: US-JNJFOC-20070104378

PATIENT
  Age: 18 Year
  Sex: Female

DRUGS (1)
  1. TRAMADOL HCL [Suspect]
     Indication: OVERDOSE
     Route: 048

REACTIONS (8)
  - AGITATION [None]
  - CONVULSION [None]
  - HYPERTENSION [None]
  - OVERDOSE [None]
  - RESPIRATORY DEPRESSION [None]
  - SELF INJURIOUS BEHAVIOUR [None]
  - SUICIDE ATTEMPT [None]
  - TACHYCARDIA [None]
